FAERS Safety Report 9308130 (Version 1)
Quarter: 2013Q2

REPORT INFORMATION
  Report Type: Report from Study
  Country: US (occurrence: US)
  Receive Date: 20130524
  Receipt Date: 20130524
  Transmission Date: 20140414
  Serious: Yes (Other)
  Sender: FDA-Public Use
  Company Number: US-ABBOTT-13P-163-1092171-00

PATIENT
  Sex: Female

DRUGS (4)
  1. HUMIRA [Suspect]
     Indication: PSORIATIC ARTHROPATHY
     Dates: start: 20130201
  2. HUMIRA [Suspect]
     Indication: PSORIASIS
  3. MOBIC [Concomitant]
     Indication: PRODUCT USED FOR UNKNOWN INDICATION
     Dosage: 15 MG DAILY
  4. ZYRTEC [Concomitant]
     Indication: HYPERSENSITIVITY

REACTIONS (8)
  - Deafness [Recovered/Resolved]
  - Injection site pain [Recovered/Resolved]
  - Ear infection [Recovered/Resolved]
  - Otorrhoea [Recovered/Resolved]
  - Ear pain [Recovered/Resolved]
  - Middle ear effusion [Recovered/Resolved]
  - Cerumen impaction [Recovered/Resolved]
  - Ear congestion [Unknown]
